FAERS Safety Report 7484045-3 (Version None)
Quarter: 2011Q2

REPORT INFORMATION
  Report Type: 
  Country: None (occurrence: None)
  Receive Date: 20110517
  Receipt Date: 20110209
  Transmission Date: 20111010
  Serious: Yes (Other)
  Sender: FDA-Public Use
  Company Number: GB-PFIZER INC-2011021482

PATIENT
  Age: 51 Year

DRUGS (7)
  1. ALLOPURINOL [Concomitant]
     Dosage: 300 MG, DAILY
  2. CETIRIZINE [Concomitant]
     Dosage: 10 MG, DAILY
  3. METFORMIN HCL [Suspect]
     Dosage: 1500MG UNIT DOSE DAILY
  4. DOXAZOSIN MESYLATE [Suspect]
     Dosage: 4MG UNIT DOSE DAILY
  5. MIRTAZAPINE [Suspect]
     Indication: DEPRESSION
     Dosage: UNK MG, 1X/DAY
  6. VALSARTAN [Concomitant]
     Dosage: 120 MG, DAILY
  7. COLCHICINE [Concomitant]
     Dosage: 1 MG, DAILY

REACTIONS (1)
  - PANCREATITIS ACUTE [None]
